FAERS Safety Report 9452593 (Version 1)
Quarter: 2013Q3

REPORT INFORMATION
  Report Type: Spontaneous
  Country: US (occurrence: US)
  Receive Date: 20130812
  Receipt Date: 20130812
  Transmission Date: 20140515
  Serious: No
  Sender: FDA-Public Use
  Company Number: US-PFIZER INC-2013233145

PATIENT
  Sex: Female

DRUGS (5)
  1. LYRICA [Suspect]
     Dosage: 50 MG/DAY
     Dates: start: 20130617, end: 201307
  2. CYMBALTA [Suspect]
     Dosage: UNK
  3. TAXOL [Suspect]
     Dosage: UNK
  4. DALMANE [Concomitant]
     Dosage: UNK
  5. FLEXERIL [Concomitant]
     Dosage: 10 MG, UNK

REACTIONS (3)
  - Abnormal dreams [Unknown]
  - Somnolence [Unknown]
  - Fatigue [Unknown]
